FAERS Safety Report 6536926-2 (Version None)
Quarter: 2010Q1

REPORT INFORMATION
  Report Type: 
  Country: None (occurrence: None)
  Receive Date: 20100113
  Receipt Date: 20091201
  Transmission Date: 20100710
  Serious: Yes (Hospitalization)
  Sender: FDA-Public Use
  Company Number: DE-GENENTECH-295541

PATIENT
  Sex: Male
  Weight: 85.4 kg

DRUGS (2)
  1. RITUXIMAB [Suspect]
     Indication: B-CELL LYMPHOMA
     Dosage: 750 MG, 1/WEEK
     Route: 042
     Dates: start: 20091209
  2. RITUXIMAB [Suspect]
     Dosage: 750 MG, 1/WEEK
     Route: 042
     Dates: start: 20100107

REACTIONS (1)
  - FACIAL PARESIS [None]
